FAERS Safety Report 10727793 (Version 1)
Quarter: 2015Q1

REPORT INFORMATION
  Report Type: Spontaneous
  Country: CN (occurrence: CN)
  Receive Date: 20150121
  Receipt Date: 20150121
  Transmission Date: 20150721
  Serious: Yes (Other)
  Sender: FDA-Public Use
  Company Number: CN-PFIZER INC-2015018206

PATIENT
  Age: 74 Year
  Sex: Female
  Weight: 70 kg

DRUGS (12)
  1. DIFLUCAN [Interacting]
     Active Substance: FLUCONAZOLE
     Indication: CANDIDA INFECTION
     Dosage: 400 MG, FIRST DOSE
     Route: 041
     Dates: start: 201303
  2. SODIUM BICARBONATE. [Concomitant]
     Active Substance: SODIUM BICARBONATE
     Indication: ORAL FUNGAL INFECTION
     Route: 048
  3. SULPERAZON [Suspect]
     Active Substance: CEFOPERAZONE SODIUM\SULBACTAM SODIUM
     Indication: ANTI-INFECTIVE THERAPY
     Dosage: 3 G, Q8H
     Route: 041
     Dates: start: 201303
  4. AMBROXOL [Concomitant]
     Active Substance: AMBROXOL
     Indication: PRODUCTIVE COUGH
     Dosage: 30 MG, BID
     Route: 042
     Dates: start: 201302
  5. TIOTROPIUM BROMIDE [Concomitant]
     Active Substance: TIOTROPIUM BROMIDE
     Indication: BRONCHOSPASM
     Dosage: UNK
     Route: 055
     Dates: start: 20130224
  6. NIFEDIPINE. [Concomitant]
     Active Substance: NIFEDIPINE
     Indication: HYPERTENSION
     Dosage: 30 MG, QD
     Route: 048
  7. SALMETEROL XINAFOATE/FLUTICASONE PROPIONATE [Concomitant]
     Active Substance: FLUTICASONE PROPIONATE\SALMETEROL XINAFOATE
     Indication: ASTHMA
  8. WARFARIN SODIUM. [Interacting]
     Active Substance: WARFARIN SODIUM
     Indication: DEEP VEIN THROMBOSIS
     Dosage: 4 MG, (2.5 MG TABLET), QD
     Route: 048
     Dates: end: 201303
  9. STANDARD MYRTLE OIL ENTERIC-COATED CAPSULES (JINUOTONG) [Concomitant]
     Indication: PRODUCTIVE COUGH
     Dosage: 0.3 G, TID
     Route: 048
     Dates: start: 201302
  10. DIFLUCAN [Interacting]
     Active Substance: FLUCONAZOLE
     Dosage: 200 MG, QD
     Route: 041
     Dates: start: 201303
  11. SALMETEROL XINAFOATE/FLUTICASONE PROPIONATE [Concomitant]
     Active Substance: FLUTICASONE PROPIONATE\SALMETEROL XINAFOATE
     Indication: BRONCHOSPASM
     Dosage: UNK
     Route: 055
     Dates: start: 20130224
  12. TIOTROPIUM BROMIDE [Concomitant]
     Active Substance: TIOTROPIUM BROMIDE
     Indication: ASTHMA

REACTIONS (3)
  - Drug interaction [Recovered/Resolved]
  - Haemorrhage intracranial [Recovered/Resolved]
  - International normalised ratio increased [Recovered/Resolved]

NARRATIVE: CASE EVENT DATE: 201303
